FAERS Safety Report 19412100 (Version 1)
Quarter: 2021Q2

REPORT INFORMATION
  Report Type: Spontaneous
  Country: IR (occurrence: IR)
  Receive Date: 20210614
  Receipt Date: 20210614
  Transmission Date: 20210717
  Serious: Yes (Hospitalization)
  Sender: FDA-Public Use
  Company Number: IR-MACLEODS PHARMACEUTICALS US LTD-MAC2021031441

PATIENT

DRUGS (2)
  1. TRAMADOL TABLETS [Suspect]
     Active Substance: TRAMADOL HYDROCHLORIDE
     Dosage: 4000 MILLIGRAM
     Route: 065
  2. TRAMADOL TABLETS [Suspect]
     Active Substance: TRAMADOL HYDROCHLORIDE
     Indication: PRODUCT USED FOR UNKNOWN INDICATION
     Dosage: 100 MILLIGRAM, BID, ABUSED IN PAST 2 MONTHS
     Route: 065

REACTIONS (12)
  - Generalised tonic-clonic seizure [Recovered/Resolved]
  - Blood creatine phosphokinase increased [Recovered/Resolved]
  - Blood lactate dehydrogenase increased [Recovered/Resolved]
  - Blood creatinine increased [Recovered/Resolved]
  - Confusional state [Recovered/Resolved]
  - Hyporeflexia [Unknown]
  - Acute kidney injury [Unknown]
  - Drug abuse [Unknown]
  - Sinus tachycardia [Unknown]
  - Suicide attempt [Unknown]
  - Miosis [Unknown]
  - Intentional overdose [Unknown]
